FAERS Safety Report 5779507-0 (Version None)
Quarter: 2008Q2

REPORT INFORMATION
  Report Type: 
  Country: None (occurrence: None)
  Receive Date: 20080619
  Receipt Date: 20080609
  Transmission Date: 20081010
  Serious: Yes (Hospitalization)
  Sender: FDA-Public Use
  Company Number: GB-PFIZER INC-2006081600

PATIENT
  Sex: Male
  Weight: 72 kg

DRUGS (7)
  1. SU-011,248 [Suspect]
     Indication: RENAL CELL CARCINOMA
     Route: 048
     Dates: start: 20060609, end: 20060622
  2. SU-011,248 [Suspect]
     Route: 048
  3. FLUDROCORTISONE ACETATE [Concomitant]
  4. HYDROCORTISONE [Concomitant]
     Dates: start: 20030401
  5. ASPIRIN [Concomitant]
     Dates: start: 20000101
  6. ATENOLOL [Concomitant]
     Dates: start: 20000101
  7. ATORVASTATIN [Concomitant]
     Dates: start: 20000101

REACTIONS (2)
  - DEHYDRATION [None]
  - LETHARGY [None]
